FAERS Safety Report 8512209-6 (Version None)
Quarter: 2012Q3

REPORT INFORMATION
  Report Type: 
  Country: None (occurrence: None)
  Receive Date: 20120716
  Receipt Date: 20120702
  Transmission Date: 20120928
  Serious: Yes (Hospitalization, Other)
  Sender: FDA-Public Use
  Company Number: JP-ROCHE-1084869

PATIENT
  Sex: Female

DRUGS (15)
  1. ACTEMRA [Suspect]
     Route: 041
     Dates: start: 20100129, end: 20100226
  2. FAMOTIDINE D [Concomitant]
     Indication: GASTRITIS
     Route: 048
  3. METHYLPREDNISOLONE [Suspect]
     Indication: RHEUMATOID ARTHRITIS
     Route: 048
  4. ISONIAZID [Concomitant]
     Indication: ANTIBIOTIC PROPHYLAXIS
     Route: 048
     Dates: start: 20090529
  5. ACTEMRA [Suspect]
     Indication: RHEUMATOID ARTHRITIS
     Route: 041
     Dates: start: 20090626, end: 20091127
  6. BROTIZOLAM [Concomitant]
     Indication: INSOMNIA
     Route: 048
  7. ACTEMRA [Suspect]
     Route: 041
     Dates: start: 20100709, end: 20101224
  8. MOBIC [Concomitant]
     Indication: RHEUMATOID ARTHRITIS
     Route: 048
  9. ALFACALCIDOL [Concomitant]
     Indication: OSTEOPOROSIS
     Route: 048
  10. MUCOSTA [Concomitant]
     Indication: GASTRITIS
     Route: 048
  11. MAGMITT [Concomitant]
     Indication: GASTRITIS
     Route: 048
  12. ACTEMRA [Suspect]
     Route: 041
     Dates: start: 20100528, end: 20100528
  13. METHOTREXATE [Suspect]
     Indication: RHEUMATOID ARTHRITIS
     Route: 048
  14. METHYLPREDNISOLONE [Suspect]
     Route: 048
  15. ACTONEL [Concomitant]
     Indication: OSTEOPOROSIS
     Route: 048

REACTIONS (2)
  - INFECTION [None]
  - SKIN ULCER [None]
